FAERS Safety Report 11435377 (Version 2)
Quarter: 2015Q3

REPORT INFORMATION
  Report Type: Spontaneous
  Country: US (occurrence: US)
  Receive Date: 20150821
  Receipt Date: 20150916
  Transmission Date: 20151125
  Serious: No
  Sender: FDA-Public Use
  Company Number: US-ELI_LILLY_AND_COMPANY-US201309008047

PATIENT
  Sex: Male

DRUGS (5)
  1. INSULIN HUMAN [Suspect]
     Active Substance: INSULIN HUMAN
     Indication: TYPE 2 DIABETES MELLITUS
     Dosage: 22 U, TID
     Dates: start: 20130816, end: 20130903
  2. INSULIN HUMAN [Suspect]
     Active Substance: INSULIN HUMAN
     Dosage: 31 U, TID
     Dates: start: 20130919
  3. LANTUS [Concomitant]
     Active Substance: INSULIN GLARGINE
     Dosage: 160 U, EACH EVENING
     Dates: end: 20130816
  4. HUMALOG [Suspect]
     Active Substance: INSULIN LISPRO
     Indication: TYPE 2 DIABETES MELLITUS
     Dosage: 96 U, TID
     Dates: end: 20130815
  5. INSULIN HUMAN [Suspect]
     Active Substance: INSULIN HUMAN
     Dosage: 28 U, TID
     Dates: start: 20130904, end: 20130918

REACTIONS (1)
  - Blood glucose increased [Not Recovered/Not Resolved]
